FAERS Safety Report 9104142 (Version 1)
Quarter: 2013Q1

REPORT INFORMATION
  Report Type: Spontaneous
  Country: ES (occurrence: ES)
  Receive Date: 20130219
  Receipt Date: 20130219
  Transmission Date: 20140127
  Serious: Yes (Other)
  Sender: FDA-Public Use
  Company Number: PHHY2013ES014777

PATIENT
  Age: 71 Year
  Sex: Female

DRUGS (6)
  1. ONBREZ [Suspect]
     Dosage: 300 UG, UNK
     Dates: start: 20130105, end: 20130113
  2. LEVOFLOXACIN [Concomitant]
     Dosage: 500 MG, QD
     Route: 048
     Dates: start: 20130103, end: 20130113
  3. COSOPT [Concomitant]
  4. DAFIRO HCT [Concomitant]
  5. FLUIDASA                           /02085901/ [Concomitant]
     Dosage: 5 MG/ML, UNK
     Dates: start: 20130103, end: 20130113
  6. LUMIGAN [Concomitant]
     Dosage: 0.1 MG/ML, UNK

REACTIONS (3)
  - Pain in extremity [Recovering/Resolving]
  - Walking disability [Recovering/Resolving]
  - Tendonitis [Unknown]
